FAERS Safety Report 10192731 (Version 2)
Quarter: 2014Q2

REPORT INFORMATION
  Report Type: Not Available
  Country: CO (occurrence: CO)
  Receive Date: 20140523
  Receipt Date: 20140619
  Transmission Date: 20141212
  Serious: Yes (Death)
  Sender: FDA-Public Use
  Company Number: CO-ONYX-2014-1156

PATIENT
  Sex: Female

DRUGS (1)
  1. KYPROLIS [Suspect]
     Indication: PLASMA CELL MYELOMA
     Route: 042
     Dates: start: 2013

REACTIONS (1)
  - Disease progression [Fatal]
